FAERS Safety Report 18341058 (Version 1)
Quarter: 2020Q4

REPORT INFORMATION
  Report Type: Spontaneous
  Country: JP (occurrence: JP)
  Receive Date: 20201003
  Receipt Date: 20201003
  Transmission Date: 20210113
  Serious: Yes (Hospitalization, Other)
  Sender: FDA-Public Use
  Company Number: JP-MICRO LABS LIMITED-ML2020-02939

PATIENT
  Age: 84 Year
  Sex: Female

DRUGS (10)
  1. BROMFENAC [Concomitant]
     Active Substance: BROMFENAC SODIUM
  2. CARTEOLOL [Suspect]
     Active Substance: CARTEOLOL
     Indication: GLAUCOMA
     Dosage: FOR THE LAST FEW YEARS
  3. TRAVOPROST. [Concomitant]
     Active Substance: TRAVOPROST
     Indication: GLAUCOMA
     Dosage: FOR THE LAST FEW YEARS
  4. VERAPAMIL HYDROCHLORIDE. [Suspect]
     Active Substance: VERAPAMIL HYDROCHLORIDE
     Indication: ATRIAL FIBRILLATION
     Route: 048
  5. REBAMIPIDE [Concomitant]
     Active Substance: REBAMIPIDE
  6. DOXAZOSIN [Concomitant]
     Active Substance: DOXAZOSIN MESYLATE
     Indication: HYPERTENSION
  7. EDOXABAN [Concomitant]
     Active Substance: EDOXABAN TOSYLATE
     Route: 048
  8. DOXAZOSIN [Concomitant]
     Active Substance: DOXAZOSIN MESYLATE
     Indication: CHRONIC KIDNEY DISEASE
     Route: 048
  9. AZILSARTAN [Suspect]
     Active Substance: AZILSARTAN KAMEDOXOMIL
     Indication: HYPERTENSION
     Route: 048
  10. AZILSARTAN [Suspect]
     Active Substance: AZILSARTAN KAMEDOXOMIL
     Indication: CHRONIC KIDNEY DISEASE

REACTIONS (2)
  - Drug interaction [Unknown]
  - Cardiogenic shock [Recovered/Resolved]
